FAERS Safety Report 6171596-7 (Version None)
Quarter: 2009Q2

REPORT INFORMATION
  Report Type: 
  Country: None (occurrence: None)
  Receive Date: 20090428
  Receipt Date: 20090428
  Transmission Date: 20091009
  Serious: Yes (Other)
  Sender: FDA-Public Use
  Company Number: None

PATIENT
  Age: 48 Year
  Sex: Female
  Weight: 83.9154 kg

DRUGS (1)
  1. PROGESTERONE [Suspect]
     Indication: MENOPAUSE
     Dosage: AS REC

REACTIONS (6)
  - BACK INJURY [None]
  - IMPAIRED HEALING [None]
  - JOINT INJURY [None]
  - MUSCLE RUPTURE [None]
  - PAIN [None]
  - SOFT TISSUE INJURY [None]
